FAERS Safety Report 25289439 (Version 2)
Quarter: 2025Q2

REPORT INFORMATION
  Report Type: Spontaneous
  Country: US (occurrence: US)
  Receive Date: 20250509
  Receipt Date: 20250513
  Transmission Date: 20250717
  Serious: Yes (Other)
  Sender: BAYER HEALTHCARE PHARMACEUTICALS INC.
  Company Number: US-BAYER-2025A062999

PATIENT
  Sex: Female

DRUGS (1)
  1. KYLEENA [Suspect]
     Active Substance: LEVONORGESTREL
     Dosage: 17.5?G/DAY
     Route: 015

REACTIONS (2)
  - Pregnancy with contraceptive device [None]
  - Drug ineffective [None]
